FAERS Safety Report 8242131-4 (Version None)
Quarter: 2012Q1

REPORT INFORMATION
  Report Type: 
  Country: None (occurrence: None)
  Receive Date: 20120314
  Receipt Date: 20100520
  Transmission Date: 20120608
  Serious: No
  Sender: FDA-Public Use
  Company Number: PHHY2010US33217

PATIENT
  Age: 49 Year
  Sex: Female

DRUGS (4)
  1. FANAPT [Suspect]
     Dosage: 6 MG, QD, ORAL
     Route: 048
     Dates: start: 20100320, end: 20100401
  2. AMBIEN [Concomitant]
  3. EFFEXOR XR [Concomitant]
  4. ALPROSTAN (ALPROSTADIL) [Concomitant]

REACTIONS (3)
  - NASAL DISCOMFORT [None]
  - BURNING SENSATION [None]
  - STOMATITIS [None]
